FAERS Safety Report 5243470-1 (Version None)
Quarter: 2007Q1

REPORT INFORMATION
  Report Type: 
  Country: None (occurrence: None)
  Receive Date: 20070222
  Receipt Date: 20070212
  Transmission Date: 20070707
  Serious: Yes (Hospitalization, Other)
  Sender: FDA-Public Use
  Company Number: PHRM2007FR00805

PATIENT
  Age: 84 Year
  Sex: Female
  Weight: 66 kg

DRUGS (10)
  1. ALLOPURINOL SODIUM [Concomitant]
     Dosage: 200 MG, QD
     Route: 048
  2. INIPOMP [Concomitant]
     Dosage: 20 MG, QOD
     Route: 048
  3. ACETAMINOPHEN [Concomitant]
     Dosage: 1 DF, QD
     Route: 048
  4. VOLTAREN [Suspect]
     Indication: OSTEOARTHRITIS
     Dosage: 100 MG, QW
     Route: 048
     Dates: end: 20070110
  5. TORENTAL [Concomitant]
     Dosage: 400 MG, TID
     Route: 048
     Dates: end: 20070110
  6. FUROSEMIDE [Concomitant]
     Indication: ESSENTIAL HYPERTENSION
     Dosage: 20 MG, QD
     Route: 048
  7. EFFERALGAN CODEINE [Concomitant]
     Indication: OSTEOARTHRITIS
     Dosage: 1 DF, QD
     Route: 048
     Dates: end: 20070110
  8. SOPROL [Concomitant]
     Indication: ESSENTIAL HYPERTENSION
     Dosage: 5 MG, QD
     Route: 048
     Dates: end: 20070111
  9. TRIATEC [Interacting]
     Indication: ESSENTIAL HYPERTENSION
     Dosage: 5 MG, QD
     Route: 048
     Dates: end: 20061221
  10. HALDOL [Concomitant]
     Dosage: 8 DROPS/DAY
     Route: 048
     Dates: start: 20070106

REACTIONS (19)
  - ACTIVATED PARTIAL THROMBOPLASTIN TIME PROLONGED [None]
  - ANXIETY [None]
  - ATRIOVENTRICULAR BLOCK FIRST DEGREE [None]
  - BLOOD CREATININE INCREASED [None]
  - BLOOD UREA INCREASED [None]
  - CATARACT [None]
  - CHARLES BONNET SYNDROME [None]
  - ELECTROCARDIOGRAM T WAVE AMPLITUDE INCREASED [None]
  - GAIT DISTURBANCE [None]
  - GENERAL PHYSICAL HEALTH DETERIORATION [None]
  - HAEMOGLOBIN DECREASED [None]
  - HALLUCINATION, VISUAL [None]
  - HYPERKALAEMIA [None]
  - HYPOCHROMASIA [None]
  - IMPAIRED SELF-CARE [None]
  - PROTHROMBIN TIME RATIO INCREASED [None]
  - RALES [None]
  - RENAL FAILURE ACUTE [None]
  - WALKING AID USER [None]
